FAERS Safety Report 25843922 (Version 1)
Quarter: 2025Q3

REPORT INFORMATION
  Report Type: Spontaneous
  Country: GB (occurrence: GB)
  Receive Date: 20250925
  Receipt Date: 20250925
  Transmission Date: 20251021
  Serious: Yes (Disabling, Other)
  Sender: HETERO
  Company Number: None

PATIENT
  Age: 29 Year
  Sex: Female

DRUGS (1)
  1. DULOXETINE [Suspect]
     Active Substance: DULOXETINE
     Indication: Headache
     Route: 065
     Dates: start: 20230101, end: 20231101

REACTIONS (12)
  - Cough [Recovered/Resolved]
  - Balance disorder [Recovered/Resolved]
  - Illness [Recovered/Resolved]
  - Heart rate [Recovered/Resolved]
  - Electric shock sensation [Recovered/Resolved]
  - Diplopia [Not Recovered/Not Resolved]
  - Nasopharyngitis [Recovered/Resolved]
  - Anxiety [Recovered/Resolved]
  - Dizziness [Recovered/Resolved]
  - Headache [Recovered/Resolved]
  - Fatigue [Recovered/Resolved]
  - Off label use [Unknown]

NARRATIVE: CASE EVENT DATE: 20230101
